FAERS Safety Report 9879936 (Version 3)
Quarter: 2014Q2

REPORT INFORMATION
  Report Type: Spontaneous
  Country: AU (occurrence: AU)
  Receive Date: 20140207
  Receipt Date: 20140430
  Transmission Date: 20141212
  Serious: Yes (Life-Threatening, Hospitalization, Other)
  Sender: FDA-Public Use
  Company Number: AU-AMGEN-AUSSP2014007714

PATIENT
  Age: 71 Year
  Sex: Female

DRUGS (3)
  1. PROLIA [Suspect]
     Indication: OSTEOPOROSIS POSTMENOPAUSAL
     Dosage: UNK
     Route: 065
     Dates: start: 201310
  2. HYDROCORTISONE [Concomitant]
     Indication: POSTPARTUM HYPOPITUITARISM
  3. KRILL OIL [Concomitant]

REACTIONS (2)
  - Vitamin D decreased [Unknown]
  - Acquired haemophilia [Recovered/Resolved]
